FAERS Safety Report 6750400-X (Version None)
Quarter: 2010Q2

REPORT INFORMATION
  Report Type: 
  Country: None (occurrence: None)
  Receive Date: 20100527
  Receipt Date: 20100513
  Transmission Date: 20101027
  Serious: Yes (Other)
  Sender: FDA-Public Use
  Company Number: US-1181793

PATIENT
  Sex: Female
  Weight: 58.9676 kg

DRUGS (5)
  1. VIGAMOX [Suspect]
     Indication: PHOTOREFRACTIVE KERATECTOMY
     Dosage: 1 GTT QID OPHTHALMIC
     Route: 047
     Dates: start: 20100325, end: 20100420
  2. ALCAINE [Suspect]
     Dosage: OPHTHALMIC
     Route: 047
     Dates: start: 20100325, end: 20100325
  3. OMNIPRED [Suspect]
     Dosage: QID UNTIL 13-APR-2010; THEN BID UNTIL 17-APR-2010 OPHTHALMIC
     Route: 047
     Dates: start: 20100325, end: 20100417
  4. BSS [Suspect]
  5. SYSTANE [Concomitant]

REACTIONS (2)
  - CORNEAL OPACITY [None]
  - KERATOPATHY [None]
